FAERS Safety Report 7669179-2 (Version None)
Quarter: 2011Q3

REPORT INFORMATION
  Report Type: 
  Country: None (occurrence: None)
  Receive Date: 20110808
  Receipt Date: 20110727
  Transmission Date: 20111222
  Serious: Yes (Other)
  Sender: FDA-Public Use
  Company Number: PHHY2011BR68611

PATIENT
  Age: 37 Year
  Sex: Female

DRUGS (8)
  1. PUVA [Concomitant]
  2. METHOTREXATE [Concomitant]
  3. CORTICOSTEROIDS [Concomitant]
  4. PREDNISONE [Concomitant]
     Dosage: 40 MG,DAILY
  5. CYCLOSPORINE [Suspect]
     Indication: PSORIASIS
     Dosage: UNK UKN, UNK
  6. CYCLOSPORINE [Suspect]
     Dosage: 4 MG/KG,DAILY
  7. BETAMETHASONE VALERATE [Concomitant]
  8. CALCIPOTRIOL [Concomitant]

REACTIONS (13)
  - PLEURAL EFFUSION [None]
  - ORTHOPNOEA [None]
  - DISCOMFORT [None]
  - OLIGURIA [None]
  - LUNG CONSOLIDATION [None]
  - ACUTE RESPIRATORY DISTRESS SYNDROME [None]
  - PULMONARY OEDEMA [None]
  - LUNG INFILTRATION [None]
  - RASH PUSTULAR [None]
  - COUGH [None]
  - OEDEMA PERIPHERAL [None]
  - PYREXIA [None]
  - PUSTULAR PSORIASIS [None]
